FAERS Safety Report 18479831 (Version 1)
Quarter: 2020Q4

REPORT INFORMATION
  Report Type: Spontaneous
  Country: RU (occurrence: RU)
  Receive Date: 20201109
  Receipt Date: 20201109
  Transmission Date: 20210114
  Serious: Yes (Other)
  Sender: FDA-Public Use
  Company Number: RU-AMGEN-RUSSP2020178652

PATIENT
  Age: 14 Year
  Sex: Female

DRUGS (1)
  1. PROLIA [Suspect]
     Active Substance: DENOSUMAB
     Indication: OSTEOMYELITIS
     Dosage: 60 MILLIGRAM
     Route: 058

REACTIONS (4)
  - Osteomyelitis [Unknown]
  - Bacterial infection [Unknown]
  - Post procedural fistula [Recovered/Resolved]
  - Off label use [Unknown]
